FAERS Safety Report 8860005 (Version 1)
Quarter: 2012Q4

REPORT INFORMATION
  Report Type: 
  Country: US (occurrence: US)
  Receive Date: 20121025
  Receipt Date: 20121025
  Transmission Date: 20130627
  Serious: No
  Sender: FDA-Public Use
  Company Number: US-009507513-1210USA008842

PATIENT
  Age: 55 Year
  Sex: Male
  Weight: 74.83 kg

DRUGS (9)
  1. VICTRELIS [Suspect]
     Dosage: 4 DF, tid spaced 7-9hrs apart
     Route: 048
     Dates: start: 201203
  2. RIBAVIRIN [Suspect]
     Dosage: UNK
     Dates: start: 20120210
  3. PEGASYS [Suspect]
     Dosage: 180 Microgram, qm
     Dates: start: 20120210
  4. ATENOLOL [Concomitant]
     Dosage: 25 mg, UNK
  5. LISINOPRIL [Concomitant]
     Dosage: 10 mg, UNK
  6. PROCRIT [Concomitant]
     Dosage: 4000/ML
  7. VITAMINS (UNSPECIFIED) [Concomitant]
  8. VITAMINS (UNSPECIFIED) [Concomitant]
  9. VITAMIN B (UNSPECIFIED) [Concomitant]

REACTIONS (10)
  - Headache [Unknown]
  - Disturbance in attention [Unknown]
  - Mental impairment [Unknown]
  - Dry skin [Unknown]
  - Haemorrhoids [Unknown]
  - Decreased appetite [Unknown]
  - Weight decreased [Unknown]
  - Alopecia [Unknown]
  - Rash [Unknown]
  - Platelet count decreased [Unknown]
